FAERS Safety Report 9869465 (Version 4)
Quarter: 2014Q2

REPORT INFORMATION
  Report Type: Spontaneous
  Country: US (occurrence: US)
  Receive Date: 20140205
  Receipt Date: 20140424
  Transmission Date: 20141212
  Serious: Yes (Other)
  Sender: FDA-Public Use
  Company Number: US-PFIZER INC-2014028994

PATIENT
  Sex: Female

DRUGS (1)
  1. CELEBREX [Suspect]
     Dosage: UNK
     Dates: end: 2003

REACTIONS (5)
  - Hypersensitivity [Unknown]
  - Swelling [Unknown]
  - Throat tightness [Unknown]
  - Lip swelling [Unknown]
  - Fear [Unknown]
